FAERS Safety Report 7571643-1 (Version None)
Quarter: 2011Q2

REPORT INFORMATION
  Report Type: 
  Country: None (occurrence: None)
  Receive Date: 20110624
  Receipt Date: 20110617
  Transmission Date: 20111010
  Serious: Yes (Hospitalization, Disabling)
  Sender: FDA-Public Use
  Company Number: US-MERCK-1102USA01706

PATIENT
  Age: 74 Year
  Sex: Female

DRUGS (11)
  1. FOSAMAX [Suspect]
     Indication: OSTEOPENIA
     Route: 048
     Dates: start: 19980114, end: 20080901
  2. CENTRUM SILVER [Concomitant]
     Route: 065
     Dates: start: 19910101
  3. CALCIUM (UNSPECIFIED) [Concomitant]
     Route: 065
  4. VITAMIN D (UNSPECIFIED) [Concomitant]
     Route: 065
  5. SYNTHROID [Concomitant]
     Route: 065
  6. FOSAMAX [Concomitant]
     Route: 048
     Dates: start: 20090201
  7. BUMETANIDE [Concomitant]
     Route: 065
  8. ASPIRIN [Concomitant]
     Route: 065
  9. POTASSIUM (UNSPECIFIED) [Concomitant]
     Route: 065
  10. FOSAMAX [Concomitant]
     Route: 048
     Dates: start: 20090201
  11. FOSAMAX [Suspect]
     Indication: OSTEOPOROSIS
     Route: 048
     Dates: start: 19980114, end: 20080901

REACTIONS (16)
  - BLOOD GLUCOSE INCREASED [None]
  - ORAL DISORDER [None]
  - BLOOD PRESSURE INADEQUATELY CONTROLLED [None]
  - HYPERCAPNIA [None]
  - HIP FRACTURE [None]
  - HYPERTENSION [None]
  - STRESS FRACTURE [None]
  - FALL [None]
  - FEMUR FRACTURE [None]
  - RESPIRATORY ACIDOSIS [None]
  - HYPOTHYROIDISM [None]
  - HEAD INJURY [None]
  - BONE DENSITY DECREASED [None]
  - OEDEMA PERIPHERAL [None]
  - PNEUMONIA ASPIRATION [None]
  - OSTEOPOROSIS [None]
